FAERS Safety Report 6354554-9 (Version None)
Quarter: 2009Q3

REPORT INFORMATION
  Report Type: 
  Country: None (occurrence: None)
  Receive Date: 20090914
  Receipt Date: 20090909
  Transmission Date: 20100115
  Serious: Yes (Other)
  Sender: FDA-Public Use
  Company Number: US-BRISTOL-MYERS SQUIBB COMPANY-14775969

PATIENT
  Age: 9 Month
  Sex: Female

DRUGS (4)
  1. IRBESARTAN [Suspect]
     Route: 064
  2. CARBAMAZEPINE [Suspect]
     Route: 064
  3. GABAPENTIN [Suspect]
     Route: 064
  4. AGALSIDASE ALFA [Suspect]
     Route: 064

REACTIONS (2)
  - FABRY'S DISEASE [None]
  - HAEMANGIOMA [None]
